FAERS Safety Report 5981146-3 (Version None)
Quarter: 2008Q4

REPORT INFORMATION
  Report Type: 
  Country: None (occurrence: None)
  Receive Date: 20081205
  Receipt Date: 20081201
  Transmission Date: 20090506
  Serious: Yes (Hospitalization)
  Sender: FDA-Public Use
  Company Number: A0746782A

PATIENT
  Age: 81 Year
  Sex: Male

DRUGS (9)
  1. ADVAIR HFA [Suspect]
     Indication: ASTHMA
     Dosage: 1PUFF TWICE PER DAY
     Route: 055
     Dates: start: 20020101
  2. ALBUTEROL [Concomitant]
     Route: 055
  3. IPRATROPIUM BROMIDE [Concomitant]
  4. OMEPRAZOLE [Concomitant]
  5. PROTONIX [Concomitant]
  6. PLAVIX [Concomitant]
  7. LOPRESSOR [Concomitant]
  8. LISINOPRIL [Concomitant]
  9. LIPITOR [Concomitant]

REACTIONS (1)
  - MYOCARDIAL INFARCTION [None]
